FAERS Safety Report 4959453-2 (Version None)
Quarter: 2006Q1

REPORT INFORMATION
  Report Type: 
  Country: None (occurrence: None)
  Receive Date: 20060331
  Receipt Date: 20051123
  Transmission Date: 20060701
  Serious: Yes (Hospitalization, Disabling, Other)
  Sender: FDA-Public Use
  Company Number: US-MERCK-0511USA03988

PATIENT
  Age: 54 Year
  Sex: Male
  Weight: 100 kg

DRUGS (4)
  1. VIOXX [Suspect]
     Indication: GOUT
     Route: 048
     Dates: start: 20020413, end: 20031030
  2. VIOXX [Suspect]
     Route: 048
     Dates: start: 20020413, end: 20031030
  3. VIOXX [Suspect]
     Route: 048
     Dates: start: 20020413, end: 20031030
  4. INDOCIN [Concomitant]
     Route: 065
     Dates: start: 20020405

REACTIONS (18)
  - ABDOMINAL PAIN [None]
  - ANGINA PECTORIS [None]
  - APPENDICITIS [None]
  - ARRHYTHMIA [None]
  - CARDIAC FAILURE CONGESTIVE [None]
  - CORONARY ARTERY DISEASE [None]
  - DYSPNOEA EXERTIONAL [None]
  - FLUID RETENTION [None]
  - GASTROOESOPHAGEAL REFLUX DISEASE [None]
  - GOUTY ARTHRITIS [None]
  - HAEMORRHOIDS [None]
  - INFARCTION [None]
  - MYOCARDIAL INFARCTION [None]
  - NEPHROLITHIASIS [None]
  - PARAESTHESIA [None]
  - STENT OCCLUSION [None]
  - THROMBOCYTOPENIA [None]
  - WEIGHT INCREASED [None]
